FAERS Safety Report 7514702-1 (Version None)
Quarter: 2011Q2

REPORT INFORMATION
  Report Type: 
  Country: None (occurrence: None)
  Receive Date: 20110526
  Receipt Date: 20110526
  Transmission Date: 20111010
  Serious: Yes (Life-Threatening, Hospitalization)
  Sender: FDA-Public Use
  Company Number: None

PATIENT
  Sex: Male
  Weight: 120.2032 kg

DRUGS (1)
  1. INDOMETHACIN [Suspect]
     Indication: GOUT
     Dosage: 50 MG 1 CAP 3X DAY ORALLY
     Route: 048
     Dates: start: 20110504

REACTIONS (2)
  - GASTRIC ULCER HAEMORRHAGE [None]
  - ABDOMINAL DISCOMFORT [None]
